FAERS Safety Report 7394255-1 (Version None)
Quarter: 2011Q2

REPORT INFORMATION
  Report Type: 
  Country: None (occurrence: None)
  Receive Date: 20110405
  Receipt Date: 20110331
  Transmission Date: 20111010
  Serious: Yes (Death)
  Sender: FDA-Public Use
  Company Number: US-PFIZER INC-2011067651

PATIENT
  Age: 93 Year
  Sex: Male
  Weight: 76.19 kg

DRUGS (11)
  1. SIMVASTATIN [Concomitant]
     Dosage: 10 MG, 1X/DAY
  2. ATENOLOL [Concomitant]
     Dosage: 15 MG, 1X/DAY
  3. TAMSULOSIN HYDROCHLORIDE [Concomitant]
     Dosage: 0.5 MG, 1X/DAY
  4. ECONAZOLE NITRATE [Concomitant]
  5. TRIAMCINOLONE ACETONIDE [Concomitant]
  6. RAMIPRIL [Concomitant]
     Dosage: 10 MG, 1X/DAY
  7. TRICOR [Concomitant]
     Dosage: 145 MG, 1X/DAY
  8. SUTENT [Suspect]
     Indication: KAPOSI'S SARCOMA
     Dosage: 37.5 MG, 1X/DAY
     Route: 048
     Dates: start: 20110216, end: 20110309
  9. AMLODIPINE BESILATE [Concomitant]
     Dosage: 10 MG, 1X/DAY
  10. MUPIROCIN [Concomitant]
  11. ASPIRIN [Concomitant]
     Dosage: 325 MG, UNK

REACTIONS (1)
  - ACUTE MYOCARDIAL INFARCTION [None]
